FAERS Safety Report 17482683 (Version 1)
Quarter: 2020Q1

REPORT INFORMATION
  Report Type: Spontaneous
  Country: US (occurrence: US)
  Receive Date: 20200218
  Receipt Date: 20200218
  Transmission Date: 20200409
  Serious: No
  Sender: FDA-Public Use
  Company Number: None

PATIENT
  Age: 56 Year
  Sex: Female

DRUGS (1)
  1. COSENTYX [Suspect]
     Active Substance: SECUKINUMAB
     Dosage: ?          OTHER DOSE:NOT AVAILABLE;OTHER FREQUENCY:OTHER;?
     Route: 058
     Dates: start: 20171201

REACTIONS (3)
  - Product dose omission [None]
  - Insurance issue [None]
  - Pain [None]

NARRATIVE: CASE EVENT DATE: 20200218
